FAERS Safety Report 12862288 (Version 1)
Quarter: 2016Q4

REPORT INFORMATION
  Report Type: Spontaneous
  Country: BR (occurrence: BR)
  Receive Date: 20161019
  Receipt Date: 20161019
  Transmission Date: 20170207
  Serious: Yes (Hospitalization)
  Sender: FDA-Public Use
  Company Number: BR-ALEXION PHARMACEUTICALS INC-A201607905

PATIENT
  Age: 3 Year
  Sex: Male

DRUGS (2)
  1. SOLIRIS [Suspect]
     Active Substance: ECULIZUMAB
     Indication: HAEMOLYTIC URAEMIC SYNDROME
     Dosage: 600 MG, QW
     Route: 042
     Dates: start: 20150915, end: 20150915
  2. SOLIRIS [Suspect]
     Active Substance: ECULIZUMAB
     Dosage: 300 MG, Q2W
     Route: 042
     Dates: start: 20150923

REACTIONS (9)
  - Platelet count abnormal [Recovered/Resolved]
  - Hepatosplenomegaly [Not Recovered/Not Resolved]
  - Haemoglobin abnormal [Recovered/Resolved]
  - Tonsillitis [Recovering/Resolving]
  - Pyrexia [Recovering/Resolving]
  - Malaise [Not Recovered/Not Resolved]
  - White blood cell count abnormal [Recovered/Resolved]
  - Bronchospasm [Not Recovered/Not Resolved]
  - Decreased appetite [Not Recovered/Not Resolved]

NARRATIVE: CASE EVENT DATE: 20161008
